FAERS Safety Report 19738036 (Version 1)
Quarter: 2021Q3

REPORT INFORMATION
  Report Type: Spontaneous
  Country: US (occurrence: US)
  Receive Date: 20210820
  Receipt Date: 20210820
  Transmission Date: 20211014
  Serious: No
  Sender: FDA-Public Use
  Company Number: None

PATIENT
  Sex: Female

DRUGS (2)
  1. VERZENIO [Suspect]
     Active Substance: ABEMACICLIB
     Indication: BREAST CANCER FEMALE
     Dosage: 1 TABLET BY MOUTH 2 TIMES A DAY MON, WED, FRI AND 1 TABLET ONCE A DAY ON ALL OTHER DAYS OF THE WEEK.
     Route: 048
     Dates: start: 202107
  2. VERZENIO [Suspect]
     Active Substance: ABEMACICLIB
     Dosage: ?          OTHER FREQUENCY:ONCE DAY TUES, THU;?

REACTIONS (1)
  - Loss of therapeutic response [None]
